FAERS Safety Report 4572094-4 (Version None)
Quarter: 2005Q1

REPORT INFORMATION
  Report Type: 
  Country: None (occurrence: None)
  Receive Date: 20050202
  Receipt Date: 20050114
  Transmission Date: 20050727
  Serious: No
  Sender: FDA-Public Use
  Company Number: USA041082288

PATIENT
  Age: 57 Year
  Sex: Female
  Weight: 77 kg

DRUGS (1)
  1. FORTEO [Suspect]
     Indication: OSTEOPOROSIS
     Dosage: 20 UG/1 DAY
     Dates: start: 20030812, end: 20041024

REACTIONS (5)
  - ERYTHEMA [None]
  - FEELING HOT [None]
  - POST PROCEDURAL COMPLICATION [None]
  - RASH PRURITIC [None]
  - URTICARIA [None]
